FAERS Safety Report 10511814 (Version 1)
Quarter: 2014Q3

REPORT INFORMATION
  Report Type: Spontaneous
  Country: US (occurrence: None)
  Receive Date: 20140926
  Receipt Date: 20140926
  Transmission Date: 20150326
  Serious: No
  Sender: FDA-Public Use
  Company Number: 1000068051

PATIENT
  Age: 72 Year
  Sex: Male

DRUGS (4)
  1. LINZESS [Suspect]
     Active Substance: LINACLOTIDE
     Indication: CONSTIPATION
     Route: 048
     Dates: start: 201404, end: 2014
  2. LINZESS [Suspect]
     Active Substance: LINACLOTIDE
     Indication: IRRITABLE BOWEL SYNDROME
     Dosage: 290 MCG (145 MCG,2 IN 1 D)
     Dates: start: 20140609, end: 20140610
  3. LINZESS [Suspect]
     Active Substance: LINACLOTIDE
     Indication: IRRITABLE BOWEL SYNDROME
     Route: 048
     Dates: start: 201404, end: 2014
  4. LINZESS [Suspect]
     Active Substance: LINACLOTIDE
     Indication: CONSTIPATION
     Dosage: 290 MCG (145 MCG,2 IN 1 D)
     Dates: start: 20140609, end: 20140610

REACTIONS (4)
  - Drug ineffective [None]
  - Diarrhoea [None]
  - Intentional product misuse [None]
  - Abdominal pain [None]

NARRATIVE: CASE EVENT DATE: 2014
